FAERS Safety Report 13701154 (Version 1)
Quarter: 2017Q2

REPORT INFORMATION
  Report Type: Spontaneous
  Country: US (occurrence: US)
  Receive Date: 20170629
  Receipt Date: 20170629
  Transmission Date: 20170830
  Serious: Yes (Hospitalization)
  Sender: FDA-Public Use
  Company Number: None

PATIENT
  Age: 42 Year
  Sex: Female
  Weight: 60.5 kg

DRUGS (10)
  1. OPDIVO [Suspect]
     Active Substance: NIVOLUMAB
     Indication: NEOPLASM MALIGNANT
     Dosage: DOSE - 3MG/KG IV Q3WEEKS X 4 DOSES THEN Q2WEEKS
     Route: 042
     Dates: end: 20170404
  2. MULTIVITAMIN [Concomitant]
     Active Substance: VITAMINS
  3. PREDNISOLONE ACETATE. [Concomitant]
     Active Substance: PREDNISOLONE ACETATE
  4. BENZOYL PEROXIDE. [Concomitant]
     Active Substance: BENZOYL PEROXIDE
  5. OMEPRAZOLE. [Concomitant]
     Active Substance: OMEPRAZOLE
  6. ACETAMINOPHEN. [Concomitant]
     Active Substance: ACETAMINOPHEN
  7. AMMONIUM LACTATE. [Concomitant]
     Active Substance: AMMONIUM LACTATE
  8. CLINDAMYCIN. [Concomitant]
     Active Substance: CLINDAMYCIN
  9. YERVOY [Suspect]
     Active Substance: IPILIMUMAB
     Indication: NEOPLASM MALIGNANT
     Dosage: DOSE - 1MG/KG IV Q3WEEKS X 4 DOSES?
     Route: 042
     Dates: end: 20170117
  10. CABOZANTINIB [Concomitant]
     Active Substance: CABOZANTINIB

REACTIONS (7)
  - Photophobia [None]
  - Amnesia [None]
  - Memory impairment [None]
  - Vision blurred [None]
  - Headache [None]
  - VIth nerve paralysis [None]
  - Encephalitis [None]

NARRATIVE: CASE EVENT DATE: 20170413
